FAERS Safety Report 23210776 (Version 1)
Quarter: 2023Q4

REPORT INFORMATION
  Report Type: Spontaneous
  Country: GB (occurrence: GB)
  Receive Date: 20231121
  Receipt Date: 20231121
  Transmission Date: 20240110
  Serious: Yes (Hospitalization)
  Sender: FDA-Public Use
  Company Number: None

PATIENT
  Age: 93 Year
  Sex: Female

DRUGS (16)
  1. DAPTOMYCIN [Suspect]
     Active Substance: DAPTOMYCIN
     Dosage: UNK
  2. SPIRONOLACTONE [Concomitant]
     Active Substance: SPIRONOLACTONE
     Dosage: 25MG TABLETS HALF A TABLET TO BE TAKEN IN THE MORNING,14 TABLET
  3. NITROGLYCERIN [Concomitant]
     Active Substance: NITROGLYCERIN
     Dosage: 400 MICROGRAMS/DOSE PUMP SUBLINGUAL SPRAY, SPRAY ONE OR TWO DOSES UNDER TONGUE
     Route: 060
  4. ACETAMINOPHEN [Concomitant]
     Active Substance: ACETAMINOPHEN
     Dosage: TWO TO BE TAKEN EVERY 4-6 HOURS UP TO FOUR TIMES A DAY
  5. HYDROXOCOBALAMIN [Concomitant]
     Active Substance: HYDROXOCOBALAMIN
     Dosage: AMPOULES, USE AS DIRECTED,1 AMPOULE
  6. LAXIDO ORANGE [Concomitant]
     Indication: Constipation
     Dosage: DISSOLVE CONTENTS OF ONE SACHET IN HALF A GLASS (125ML) OFWATER AND TAKE TWICE A DAY WHEN REQUIRED
  7. SENNA LEAF [Concomitant]
     Active Substance: SENNA LEAF
     Dosage: TWO TO BE TAKEN AT NIGHT
  8. BRINZOLAMIDE [Concomitant]
     Active Substance: BRINZOLAMIDE
     Dosage: ONE DROP TO BE USED TWICE A DAY IN BOTH EYES,10 ML
     Route: 047
  9. CLOPIDOGREL [Concomitant]
     Active Substance: CLOPIDOGREL BISULFATE
     Dosage: ONE TO BE TAKEN EACH DAY,28 TABLET
  10. ISOSORBIDE MONONITRATE [Concomitant]
     Active Substance: ISOSORBIDE MONONITRATE
     Dosage: ONE TO BE TAKEN TWICE A DAY,56 TABLET
  11. LEVOTHYROXINE SODIUM [Concomitant]
     Active Substance: LEVOTHYROXINE SODIUM
     Dosage: ONE TO BE TAKEN DAILY,28 TABLET
  12. NICORANDIL [Concomitant]
     Active Substance: NICORANDIL
     Dosage: ONE TO BE TAKEN TWICE A DAY,56 TABLET
  13. SERTRALINE [Concomitant]
     Active Substance: SERTRALINE HYDROCHLORIDE
     Dosage: TWO TO BE TAKEN EACH MORNING
  14. CALCIUM CARBONATE\CHOLECALCIFEROL [Concomitant]
     Active Substance: CALCIUM CARBONATE\CHOLECALCIFEROL
     Dosage: TUTTI FRUTTI TWO CHEWABLE TABLETS PER DAY, PREFERABLY ONE TABLET EACH MORNING AND EVENING,56 TABLET
  15. LATANOPROST [Concomitant]
     Active Substance: LATANOPROST
     Dosage: ONE DROP TO BE USED AT NIGHT IN BOTH EYE(S),5 ML
     Route: 047
  16. LANSOPRAZOLE [Concomitant]
     Active Substance: LANSOPRAZOLE
     Dosage: ONE TO BE TAKEN EACH MORNING

REACTIONS (1)
  - Neutropenia [Recovered/Resolved]
